FAERS Safety Report 24584685 (Version 1)
Quarter: 2024Q4

REPORT INFORMATION
  Report Type: Spontaneous
  Country: RU (occurrence: RU)
  Receive Date: 20241106
  Receipt Date: 20241106
  Transmission Date: 20250115
  Serious: Yes (Other)
  Sender: SANDOZ
  Company Number: RU-SANDOZ-SDZ2024RU091699

PATIENT
  Sex: Female

DRUGS (1)
  1. AMOXICILLIN\CLAVULANATE POTASSIUM [Suspect]
     Active Substance: AMOXICILLIN\CLAVULANATE POTASSIUM
     Indication: Product used for unknown indication
     Dosage: UNK (0.875G+0.125G)
     Route: 065

REACTIONS (6)
  - Eye inflammation [Unknown]
  - Abdominal discomfort [Unknown]
  - Body temperature increased [Unknown]
  - Product complaint [Unknown]
  - Product colour issue [Unknown]
  - Product storage error [Unknown]
